FAERS Safety Report 6910592-6 (Version None)
Quarter: 2010Q3

REPORT INFORMATION
  Report Type: 
  Country: None (occurrence: None)
  Receive Date: 20100806
  Receipt Date: 20100804
  Transmission Date: 20110219
  Serious: Yes (Death)
  Sender: FDA-Public Use
  Company Number: JP-BRISTOL-MYERS SQUIBB COMPANY-15075831

PATIENT
  Age: 69 Year
  Sex: Male
  Weight: 65 kg

DRUGS (14)
  1. ERBITUX [Suspect]
     Indication: RECTAL CANCER
     Dosage: 05AUG09:400MG/M2 12AUG09-16SEP09:250MG/M2 2SEP09:3RD INF
     Route: 042
     Dates: start: 20090805, end: 20090916
  2. IRINOTECAN HCL [Concomitant]
     Indication: RECTAL CANCER
     Dosage: 3RD INF ON 02SEP09 225MG FROM 05AUG09 240MG ON 16SEP09
     Route: 042
     Dates: start: 20090805, end: 20090916
  3. FLUOROURACIL [Concomitant]
     Indication: RECTAL CANCER
     Dosage: 3RD AND MOST RECENT INF ON 02SEP09
     Route: 041
     Dates: start: 20090805, end: 20090902
  4. LEUCOVORIN CALCIUM [Concomitant]
     Indication: RECTAL CANCER
     Dosage: 3RD AND MOST RECENT INF ON 02SEP09
     Route: 041
     Dates: start: 20090805, end: 20090902
  5. POLARAMINE [Concomitant]
     Indication: PREMEDICATION
     Dosage: EVERY TIME BEFORE ERBITUX INF
     Route: 042
     Dates: start: 20090805, end: 20090916
  6. DECADRON [Concomitant]
     Indication: PREMEDICATION
     Dosage: EVERY TIME BEFORE ERBITUX INF
     Route: 042
     Dates: start: 20090805, end: 20090916
  7. KYTRIL [Concomitant]
     Indication: ANTIEMETIC SUPPORTIVE CARE
     Route: 042
     Dates: end: 20090909
  8. ZOFRAN [Concomitant]
     Indication: ANTIEMETIC SUPPORTIVE CARE
     Dosage: ALSO ORALLY
     Route: 042
     Dates: end: 20090820
  9. ADALAT CC [Concomitant]
     Indication: HYPERTENSION
     Dosage: FORM = TABS
     Route: 048
     Dates: end: 20090923
  10. ROHYPNOL [Concomitant]
     Indication: INSOMNIA
     Dosage: FORM = TABS
     Route: 048
     Dates: end: 20090923
  11. PAXIL [Concomitant]
     Indication: DEPRESSION
     Dosage: FORM = TABS
     Route: 048
     Dates: start: 20090612, end: 20090923
  12. TAKEPRON [Concomitant]
     Indication: PEPTIC ULCER
     Dosage: TAKEPRON-OD TABS
     Route: 048
     Dates: start: 20090612, end: 20090923
  13. HYPEN [Concomitant]
     Indication: CANCER PAIN
     Dosage: FORM = TABS
     Route: 048
     Dates: start: 20090415, end: 20090923
  14. DUROTEP [Concomitant]
     Indication: CANCER PAIN
     Dosage: 1DF=1SHEET
     Route: 062
     Dates: start: 20090624, end: 20090923

REACTIONS (1)
  - PNEUMONIA [None]
